FAERS Safety Report 7965697-8 (Version None)
Quarter: 2011Q4

REPORT INFORMATION
  Report Type: 
  Country: None (occurrence: None)
  Receive Date: 20111208
  Receipt Date: 20111129
  Transmission Date: 20120403
  Serious: Yes (Hospitalization)
  Sender: FDA-Public Use
  Company Number: CH-ELI_LILLY_AND_COMPANY-CH201111005519

PATIENT
  Sex: Male
  Weight: 80 kg

DRUGS (1)
  1. EFFIENT [Suspect]
     Indication: ACUTE CORONARY SYNDROME
     Dosage: 60 MG, UNKNOWN
     Route: 065
     Dates: start: 20110921

REACTIONS (3)
  - ACUTE CORONARY SYNDROME [None]
  - CORONARY ARTERY THROMBOSIS [None]
  - TREATMENT NONCOMPLIANCE [None]
